FAERS Safety Report 18509024 (Version 3)
Quarter: 2020Q4

REPORT INFORMATION
  Report Type: Spontaneous
  Country: DE (occurrence: DE)
  Receive Date: 20201117
  Receipt Date: 20201126
  Transmission Date: 20210114
  Serious: Yes (Other)
  Sender: FDA-Public Use
  Company Number: DE-AUROBINDO-AUR-APL-2020-055900

PATIENT
  Sex: Male
  Weight: 85 kg

DRUGS (2)
  1. TERBINAFINE AUROBINDO TABLETS 250MG [Suspect]
     Active Substance: TERBINAFINE HYDROCHLORIDE
     Indication: FUNGAL INFECTION
     Dosage: 1 DOSAGE FORM, DAILY (1 TABLET)
     Route: 048
  2. INSULIN [Concomitant]
     Active Substance: INSULIN NOS
     Indication: DIABETES MELLITUS
     Dosage: UNK, DAILY
     Route: 065

REACTIONS (3)
  - Blood glucose increased [Recovered/Resolved]
  - Renal impairment [Recovered/Resolved]
  - Rash pruritic [Recovered/Resolved]
